FAERS Safety Report 7439245-5 (Version None)
Quarter: 2011Q2

REPORT INFORMATION
  Report Type: 
  Country: None (occurrence: None)
  Receive Date: 20110427
  Receipt Date: 20110419
  Transmission Date: 20111010
  Serious: Yes (Hospitalization)
  Sender: FDA-Public Use
  Company Number: CA-ELI_LILLY_AND_COMPANY-CA201104005784

PATIENT

DRUGS (2)
  1. ZYPREXA [Suspect]
     Dosage: 12.5 MG, QD
     Route: 048
  2. ZYPREXA [Suspect]
     Dosage: 20 MG, QD
     Route: 048

REACTIONS (1)
  - HOSPITALISATION [None]
